FAERS Safety Report 9849364 (Version 1)
Quarter: 2014Q1

REPORT INFORMATION
  Report Type: Spontaneous
  Country: US (occurrence: None)
  Receive Date: 20140127
  Receipt Date: 20140127
  Transmission Date: 20141002
  Serious: Yes (Hospitalization)
  Sender: FDA-Public Use
  Company Number: None

PATIENT
  Age: 71 Year
  Sex: Female

DRUGS (2)
  1. PSEUDOEPHEDRINE [Suspect]
     Indication: NASOPHARYNGITIS
     Route: 048
     Dates: start: 20131114
  2. PSEUDOEPHEDRINE [Suspect]
     Indication: HYPERSENSITIVITY
     Route: 048
     Dates: start: 20131114

REACTIONS (3)
  - Respiratory failure [None]
  - Ventricular tachycardia [None]
  - Blood glucose increased [None]
